FAERS Safety Report 15947576 (Version 4)
Quarter: 2019Q1

REPORT INFORMATION
  Report Type: Spontaneous
  Country: GB (occurrence: GB)
  Receive Date: 20190211
  Receipt Date: 20190318
  Transmission Date: 20190417
  Serious: Yes (Death, Congenital Anomaly, Other)
  Sender: FDA-Public Use
  Company Number: GB-PFIZER INC-2019059364

PATIENT
  Sex: Male

DRUGS (5)
  1. PHENYTOIN. [Suspect]
     Active Substance: PHENYTOIN
     Dosage: 600 MG, DAILY
     Route: 064
  2. PHENOBARBITONE [PHENOBARBITAL] [Suspect]
     Active Substance: PHENOBARBITAL
     Indication: EPILEPSY
     Dosage: 135 MG, DAILY
     Route: 064
  3. PHENYTOIN. [Suspect]
     Active Substance: PHENYTOIN
     Dosage: 300 MG, DAILY
     Route: 064
  4. PHENYTOIN. [Suspect]
     Active Substance: PHENYTOIN
     Indication: EPILEPSY
     Dosage: 150 MG, DAILY
     Route: 064
  5. PHENOBARBITONE [PHENOBARBITAL] [Suspect]
     Active Substance: PHENOBARBITAL
     Dosage: 90 MG, DAILY
     Route: 064

REACTIONS (8)
  - Death neonatal [Fatal]
  - Oesophageal atresia [Unknown]
  - VACTERL syndrome [Unknown]
  - Ventricular septal defect [Unknown]
  - Renal fusion anomaly [Unknown]
  - Right ventricular enlargement [Unknown]
  - Maternal exposure during pregnancy [Fatal]
  - Anal atresia [Unknown]
